FAERS Safety Report 19112044 (Version 1)
Quarter: 2021Q2

REPORT INFORMATION
  Report Type: Spontaneous
  Country: US (occurrence: US)
  Receive Date: 20210409
  Receipt Date: 20210409
  Transmission Date: 20210717
  Serious: Yes (Hospitalization)
  Sender: FDA-Public Use
  Company Number: None

PATIENT
  Age: 49 Year
  Sex: Female
  Weight: 117 kg

DRUGS (1)
  1. CASIRIVIMAB?IMDEVIMAB [Suspect]
     Active Substance: CASIRIVIMAB\IMDEVIMAB
     Indication: COVID-19
     Dosage: ?          OTHER FREQUENCY:ONCE;?
     Route: 042
     Dates: start: 20210328, end: 20210328

REACTIONS (8)
  - Hepatic enzyme increased [None]
  - Fatigue [None]
  - Cough [None]
  - Dyspnoea [None]
  - Headache [None]
  - Hypokalaemia [None]
  - Chest X-ray abnormal [None]
  - COVID-19 pneumonia [None]

NARRATIVE: CASE EVENT DATE: 20210330
